FAERS Safety Report 26137865 (Version 1)
Quarter: 2025Q4

REPORT INFORMATION
  Report Type: Spontaneous
  Country: CA (occurrence: CA)
  Receive Date: 20251210
  Receipt Date: 20251210
  Transmission Date: 20260119
  Serious: Yes (Other)
  Sender: CSL BEHRING
  Company Number: CA-BEH-2025227544

PATIENT
  Age: 54 Year
  Sex: Female

DRUGS (1)
  1. ZEMAIRA [Suspect]
     Active Substance: .ALPHA.1-PROTEINASE INHIBITOR HUMAN
     Indication: Alpha-1 antitrypsin deficiency
     Dosage: 8880.0 MILLIGRAM, 1 EVERY 2 WEEKS
     Route: 042

REACTIONS (4)
  - Hepatic steatosis [Recovering/Resolving]
  - Cholelithiasis [Recovering/Resolving]
  - Abdominal pain [Recovering/Resolving]
  - Therapy change [Unknown]
